FAERS Safety Report 5739509-7 (Version None)
Quarter: 2008Q2

REPORT INFORMATION
  Report Type: 
  Country: None (occurrence: None)
  Receive Date: 20080515
  Receipt Date: 20080509
  Transmission Date: 20081010
  Serious: Yes (Congenital Anomaly)
  Sender: FDA-Public Use
  Company Number: GB-AVENTIS-200814354GDDC

PATIENT
  Sex: Female

DRUGS (1)
  1. CLOMID [Suspect]
     Dosage: DOSE: UNK
     Route: 064

REACTIONS (1)
  - ATRIOVENTRICULAR SEPTAL DEFECT [None]
